FAERS Safety Report 26202748 (Version 1)
Quarter: 2025Q4

REPORT INFORMATION
  Report Type: Spontaneous
  Country: JP (occurrence: JP)
  Receive Date: 20251226
  Receipt Date: 20251226
  Transmission Date: 20260117
  Serious: Yes (Other)
  Sender: ACCORD
  Company Number: JP-Accord-519483

PATIENT
  Age: 59 Year
  Sex: Female

DRUGS (3)
  1. ETOPOSIDE [Suspect]
     Active Substance: ETOPOSIDE
     Indication: Epstein-Barr virus associated lymphoproliferative disorder
     Dosage: 150 MG/M2 TWICE WEEKLY FOR ONE?COURSE
  2. CYCLOSPORINE [Concomitant]
     Active Substance: CYCLOSPORINE
     Indication: Epstein-Barr virus associated lymphoproliferative disorder
     Dosage: 3 MG/KG/DAY
  3. DEXAMETHASONE [Concomitant]
     Active Substance: DEXAMETHASONE
     Indication: Epstein-Barr virus associated lymphoproliferative disorder

REACTIONS (1)
  - Tumour lysis syndrome [Recovered/Resolved]
